FAERS Safety Report 23420196 (Version 1)
Quarter: 2024Q1

REPORT INFORMATION
  Report Type: Other
  Country: TW (occurrence: None)
  Receive Date: 20240119
  Receipt Date: 20240119
  Transmission Date: 20240410
  Serious: Yes (Other)
  Sender: FDA-Public Use
  Company Number: TW-ROCHE-3492164

PATIENT
  Age: 75 Year
  Sex: Female
  Weight: 66 kg

DRUGS (2)
  1. TECENTRIQ [Suspect]
     Active Substance: ATEZOLIZUMAB
     Indication: Non-small cell lung cancer
     Route: 065
     Dates: start: 20211104, end: 20231130
  2. AVASTIN [Suspect]
     Active Substance: BEVACIZUMAB
     Indication: Non-small cell lung cancer
     Route: 065
     Dates: start: 20220908, end: 20231130

REACTIONS (1)
  - Brain neoplasm [Recovering/Resolving]

NARRATIVE: CASE EVENT DATE: 20231221
